APPROVED DRUG PRODUCT: EVZIO (AUTOINJECTOR)
Active Ingredient: NALOXONE HYDROCHLORIDE
Strength: 2MG/0.4ML (2MG/0.4ML)
Dosage Form/Route: SOLUTION;INTRAMUSCULAR, SUBCUTANEOUS
Application: N209862 | Product #001
Applicant: KALEO INC
Approved: Oct 19, 2016 | RLD: Yes | RS: No | Type: DISCN

PATENTS:
Patent 9474869 | Expires: Feb 28, 2031
Patent 9724471 | Expires: May 23, 2027
Patent 9517307 | Expires: Jul 18, 2034
Patent 10143792 | Expires: May 24, 2031
Patent 10220158 | Expires: Mar 20, 2035
Patent 10322239 | Expires: Feb 28, 2031
Patent 8926594 | Expires: Mar 31, 2026
Patent 7749194 | Expires: Oct 30, 2028
Patent 8206360 | Expires: Feb 27, 2027
Patent 10960155 | Expires: Jun 25, 2026
Patent 8021344 | Expires: Nov 2, 2029
Patent 11590286 | Expires: Dec 12, 2026
Patent 7947017 | Expires: Mar 12, 2028
Patent 9238108 | Expires: Feb 20, 2027
Patent 8627816 | Expires: Feb 4, 2032
Patent 7731686 | Expires: Jun 1, 2026
Patent 8939943 | Expires: Feb 28, 2031
Patent 8226610 | Expires: Apr 10, 2029
Patent 9022022 | Expires: Feb 28, 2031
Patent 8231573 | Expires: Nov 25, 2028
Patent 9278182 | Expires: Feb 1, 2026